FAERS Safety Report 8896356 (Version 1)
Quarter: 2012Q4

REPORT INFORMATION
  Report Type: Spontaneous
  Country: US (occurrence: None)
  Receive Date: 20121102
  Receipt Date: 20121102
  Transmission Date: 20130627
  Serious: Yes (Death, Hospitalization, Other)
  Sender: FDA-Public Use
  Company Number: DSA_60428_2012

PATIENT
  Sex: Female

DRUGS (3)
  1. 5-FU [Suspect]
     Indication: CERVIX CARCINOMA
     Dosage: 1000 mg/m2/24 hours for 96 hours every cycle for 2 cycles at 1st and 5th week
  2. CISPLATIN [Suspect]
     Dosage: 100 mg/m2 which was administered as 1mg/min on the 2nd day of every cycle for 2 cycles at 1st, 5th
     Route: 040
  3. THERAPEUTIC RADIOPHARMACEUTICALS [Suspect]
     Dosage: 1.8 Gy/treatment for 5 days/week

REACTIONS (2)
  - Gastroenteritis radiation [None]
  - Intestinal obstruction [None]
